FAERS Safety Report 5237945-9 (Version None)
Quarter: 2007Q1

REPORT INFORMATION
  Report Type: 
  Country: None (occurrence: None)
  Receive Date: 20070209
  Receipt Date: 20070125
  Transmission Date: 20070707
  Serious: Yes (Hospitalization)
  Sender: FDA-Public Use
  Company Number: DSA_29329_2007

PATIENT
  Age: 41 Year
  Sex: Male

DRUGS (10)
  1. TEMESTA [Suspect]
     Dosage: 7.5 MG Q DAY UNK
  2. PANTOZOL [Suspect]
     Dosage: 40 MG Q DAY PO
     Route: 048
  3. AKINETON [Suspect]
     Dosage: 4 MG Q DAY PO
     Route: 048
  4. CLOPIXOL /00876701/ [Suspect]
     Dosage: 60 MG Q DAY PO
     Route: 048
  5. LITHIUM CARBONATE [Suspect]
     Indication: AGGRESSION
     Dosage: 660 MG Q DAY PO
     Route: 048
     Dates: start: 20030804, end: 20030813
  6. LITHIUM CARBONATE [Suspect]
     Indication: AGGRESSION
     Dosage: 1320 MG Q DAY PO
     Route: 048
     Dates: start: 20030814, end: 20030819
  7. SEROPRAM /00582602/ [Suspect]
     Indication: AGGRESSION
     Dosage: 20 MG Q DAY PO
     Route: 048
     Dates: start: 20030804, end: 20030818
  8. TEGRETOL [Suspect]
     Indication: AGGRESSION
     Dosage: 200 MG Q DAY PO
     Route: 048
     Dates: start: 20030804, end: 20030818
  9. TEGRETOL [Suspect]
     Indication: AGGRESSION
     Dosage: 800 MG ONCE PO
     Route: 048
     Dates: start: 20030816, end: 20030816
  10. FERRUM HAUSMANN /00023505/ [Concomitant]

REACTIONS (13)
  - AGGRESSION [None]
  - ALANINE AMINOTRANSFERASE DECREASED [None]
  - AMNESIA [None]
  - ASPARTATE AMINOTRANSFERASE DECREASED [None]
  - BLOOD ALKALINE PHOSPHATASE INCREASED [None]
  - CONFUSIONAL STATE [None]
  - DISORIENTATION [None]
  - GAIT DISTURBANCE [None]
  - GAMMA-GLUTAMYLTRANSFERASE INCREASED [None]
  - HAEMOGLOBIN DECREASED [None]
  - SEDATION [None]
  - TREMOR [None]
  - URINARY INCONTINENCE [None]
